FAERS Safety Report 25371013 (Version 1)
Quarter: 2025Q2

REPORT INFORMATION
  Report Type: Spontaneous
  Country: DE (occurrence: DE)
  Receive Date: 20250528
  Receipt Date: 20250528
  Transmission Date: 20250716
  Serious: Yes (Life-Threatening, Hospitalization, Other)
  Sender: ABBVIE
  Company Number: None

PATIENT
  Age: 60 Year
  Sex: Male
  Weight: 150 kg

DRUGS (4)
  1. SEVOFLURANE [Suspect]
     Active Substance: SEVOFLURANE
     Indication: Sedation
     Route: 065
     Dates: start: 20250424
  2. MEROPENEM [Concomitant]
     Active Substance: MEROPENEM
     Indication: Sepsis
  3. CORDAREX [Suspect]
     Active Substance: AMIODARONE
     Indication: Product used for unknown indication
     Route: 042
     Dates: start: 20250505
  4. CIPROFLOXACIN [Interacting]
     Active Substance: CIPROFLOXACIN
     Indication: Necrotising fasciitis
     Dosage: CIPROFLOXACIN KABI 200 MG/100 ML INFUSION SOLUTION
     Route: 042
     Dates: start: 20250504, end: 20250505

REACTIONS (6)
  - Foot deformity [Recovering/Resolving]
  - Contraindicated product administered [Unknown]
  - Product prescribing issue [Unknown]
  - Cardiovascular disorder [Recovering/Resolving]
  - Labelled drug-drug interaction issue [Unknown]
  - Contraindicated product prescribed [Unknown]

NARRATIVE: CASE EVENT DATE: 20250505
